FAERS Safety Report 9606152 (Version 2)
Quarter: 2013Q4

REPORT INFORMATION
  Report Type: Spontaneous
  Country: US (occurrence: US)
  Receive Date: 20131008
  Receipt Date: 20131008
  Transmission Date: 20140711
  Serious: No
  Sender: FDA-Public Use
  Company Number: US-AMGEN-USASP2013039426

PATIENT
  Age: 56 Year
  Sex: Female
  Weight: 55.78 kg

DRUGS (2)
  1. PROLIA [Suspect]
     Indication: OSTEOPOROSIS POSTMENOPAUSAL
     Dosage: UNK
     Dates: start: 201305
  2. COUMADIN                           /00014802/ [Concomitant]

REACTIONS (1)
  - Back pain [Unknown]
